FAERS Safety Report 10085714 (Version 2)
Quarter: 2014Q2

REPORT INFORMATION
  Report Type: Spontaneous
  Country: US (occurrence: None)
  Receive Date: 20140416
  Receipt Date: 20140421
  Transmission Date: 20141212
  Serious: Yes (Other)
  Sender: FDA-Public Use
  Company Number: ADR-2014-00609

PATIENT
  Age: 18 Year
  Sex: Female

DRUGS (1)
  1. LIORESAL [Suspect]
     Indication: MUSCLE SPASTICITY

REACTIONS (4)
  - Device related infection [None]
  - Staphylococcus test positive [None]
  - Drug withdrawal syndrome [None]
  - Dystonia [None]
